FAERS Safety Report 15375066 (Version 12)
Quarter: 2020Q1

REPORT INFORMATION
  Report Type: Spontaneous
  Country: JP (occurrence: JP)
  Receive Date: 20180912
  Receipt Date: 20200207
  Transmission Date: 20200409
  Serious: Yes (Death, Life-Threatening, Hospitalization, Other)
  Sender: FDA-Public Use
  Company Number: JP-ASTRAZENECA-2018SF15346

PATIENT
  Age: 67 Year
  Sex: Male
  Weight: 53 kg

DRUGS (9)
  1. SEROQUEL [Concomitant]
     Active Substance: QUETIAPINE FUMARATE
     Route: 048
  2. LIXIANA OD [Concomitant]
     Active Substance: EDOXABAN TOSYLATE
     Indication: CEREBRAL INFARCTION
     Route: 048
     Dates: start: 201707
  3. IMFINZI [Suspect]
     Active Substance: DURVALUMAB
     Indication: NON-SMALL CELL LUNG CANCER
     Route: 042
     Dates: start: 20180830, end: 20180830
  4. TAKECAB [Concomitant]
     Active Substance: VONOPRAZAN FUMURATE
     Route: 048
     Dates: start: 20180723
  5. CODEINE PHOSPHATE HYDRATE [Concomitant]
     Active Substance: CODEINE PHOSPHATE
     Indication: COUGH
     Route: 048
     Dates: start: 201806
  6. NAIXAN [Concomitant]
     Active Substance: NAPROXEN SODIUM
     Indication: MICTURITION DISORDER
     Route: 048
     Dates: start: 20180723
  7. AZILVA [Concomitant]
     Active Substance: AZILSARTAN KAMEDOXOMIL
     Route: 048
  8. DEXTROMETHORPHAN HYDROBROMIDE HYDRATE [Concomitant]
     Active Substance: DEXTROMETHORPHAN HYDROBROMIDE
     Route: 048
  9. LANSOPRAZOLE. [Concomitant]
     Active Substance: LANSOPRAZOLE
     Dosage: UNKNOWN
     Route: 065

REACTIONS (14)
  - Renal failure [Fatal]
  - Hepatic failure [Recovered/Resolved]
  - Septic shock [Unknown]
  - Pneumocystis jirovecii pneumonia [Unknown]
  - Respiratory failure [Fatal]
  - Circulatory collapse [Recovering/Resolving]
  - Toxic epidermal necrolysis [Recovering/Resolving]
  - Bronchopulmonary aspergillosis [Fatal]
  - Disseminated intravascular coagulation [Recovering/Resolving]
  - Platelet count decreased [Recovering/Resolving]
  - Cardio-respiratory arrest [Recovered/Resolved]
  - Radiation pneumonitis [Not Recovered/Not Resolved]
  - Anaemia [Not Recovered/Not Resolved]
  - Acute respiratory distress syndrome [Fatal]

NARRATIVE: CASE EVENT DATE: 20180831
